FAERS Safety Report 15984563 (Version 1)
Quarter: 2019Q1

REPORT INFORMATION
  Report Type: Spontaneous
  Country: US (occurrence: US)
  Receive Date: 20190125
  Receipt Date: 20190125
  Transmission Date: 20190418
  Serious: No
  Sender: FDA-Public Use
  Company Number: None

PATIENT
  Age: 59 Year
  Sex: Female

DRUGS (2)
  1. TACROLIMUS CAP 1MG [Suspect]
     Active Substance: TACROLIMUS
     Route: 048
     Dates: start: 201801
  2. MYCOPHENOLATE 250MG CAPS FROM 01/01/2018 TO // [Concomitant]

REACTIONS (2)
  - Economic problem [None]
  - Therapy cessation [None]

NARRATIVE: CASE EVENT DATE: 20190125
